FAERS Safety Report 18293106 (Version 1)
Quarter: 2020Q3

REPORT INFORMATION
  Report Type: Spontaneous
  Country: CA (occurrence: CA)
  Receive Date: 20200921
  Receipt Date: 20200921
  Transmission Date: 20201103
  Serious: Yes (Hospitalization, Disabling)
  Sender: FDA-Public Use
  Company Number: None

PATIENT
  Age: 28 Year
  Sex: Female
  Weight: 75.6 kg

DRUGS (5)
  1. PROBIOTICS [Concomitant]
     Active Substance: PROBIOTICS NOS
  2. EFFEXOR XR [Suspect]
     Active Substance: VENLAFAXINE HYDROCHLORIDE
     Indication: ANXIETY
     Dosage: ?          QUANTITY:1 CAPSULE(S);?
     Dates: start: 20130724, end: 20180201
  3. IRON SUPPLEMENT [Concomitant]
     Active Substance: IRON
  4. OMEGA 3 [Concomitant]
     Active Substance: OMEGA-3 FATTY ACIDS
  5. DESSICATED THYROID 81.25MG CAPSULE [Concomitant]
     Active Substance: THYROID, UNSPECIFIED

REACTIONS (16)
  - Tachycardia [None]
  - Abnormal dreams [None]
  - Urticaria [None]
  - Withdrawal syndrome [None]
  - Migraine [None]
  - Anxiety [None]
  - Muscle twitching [None]
  - Panic attack [None]
  - Hypertension [None]
  - Head discomfort [None]
  - Loss of consciousness [None]
  - Insomnia [None]
  - Nightmare [None]
  - Dissociation [None]
  - Depression [None]
  - Palpitations [None]

NARRATIVE: CASE EVENT DATE: 20180629
